FAERS Safety Report 8831184 (Version 3)
Quarter: 2012Q4

REPORT INFORMATION
  Report Type: Report from Study
  Country: US (occurrence: US)
  Receive Date: 20121008
  Receipt Date: 20121213
  Transmission Date: 20130627
  Serious: Yes (Death, Hospitalization)
  Sender: FDA-Public Use
  Company Number: US-ASTELLAS-2012US009938

PATIENT
  Age: 68 Year
  Sex: Female

DRUGS (15)
  1. TACROLIMUS CAPSULES [Suspect]
     Indication: PARANEOPLASTIC NEUROLOGICAL SYNDROME
     Dosage: 10mg
     Route: 048
  2. TACROLIMUS CAPSULES [Suspect]
     Dosage: 7 mg, Q12 hours
     Route: 048
     Dates: start: 20120215
  3. PREDNISONE [Concomitant]
     Indication: PARANEOPLASTIC NEUROLOGICAL SYNDROME
     Dosage: 60 mg, UID/QD
     Route: 048
  4. HEPARIN [Concomitant]
     Indication: PRODUCT USED FOR UNKNOWN INDICATION
     Dosage: 5000 U, Q12 hours
     Route: 058
  5. MULTI-VIT [Concomitant]
     Indication: PRODUCT USED FOR UNKNOWN INDICATION
     Dosage: 5 ml, UID/QD
     Route: 048
  6. CLONOPIN [Concomitant]
     Indication: PRODUCT USED FOR UNKNOWN INDICATION
     Dosage: 0.5 mg, Q8 hours
     Route: 048
  7. SYNTHROID [Concomitant]
     Indication: PRODUCT USED FOR UNKNOWN INDICATION
     Dosage: 0.075 mg, UID/QD
     Route: 048
  8. VIT B12 [Concomitant]
     Indication: PRODUCT USED FOR UNKNOWN INDICATION
     Dosage: 1 DF, UID/QD
     Route: 048
  9. VIT-C [Concomitant]
     Indication: PRODUCT USED FOR UNKNOWN INDICATION
     Dosage: 500 mg, UID/QD
     Route: 048
  10. CALCIUM [Concomitant]
     Indication: PRODUCT USED FOR UNKNOWN INDICATION
     Dosage: 600 mg, UID/QD
     Route: 048
  11. OMEGA 3 FISH OIL [Concomitant]
     Indication: PRODUCT USED FOR UNKNOWN INDICATION
     Dosage: 1 DF, UID/QD
     Route: 048
  12. ZYRTEC [Concomitant]
     Indication: PRODUCT USED FOR UNKNOWN INDICATION
     Dosage: 10 mg, UID/QD
     Route: 048
  13. COENZYME Q10 [Concomitant]
     Indication: PRODUCT USED FOR UNKNOWN INDICATION
     Dosage: 1 DF, UID/QD
     Route: 048
  14. PANTOPRAZOLE [Concomitant]
     Indication: PRODUCT USED FOR UNKNOWN INDICATION
     Dosage: 40 mg, UID/QD
     Route: 048
  15. REGLAN                             /00041901/ [Concomitant]
     Indication: PRODUCT USED FOR UNKNOWN INDICATION
     Dosage: 10 mg, Q6 hours
     Route: 048

REACTIONS (2)
  - Neurological decompensation [Fatal]
  - Immunosuppressant drug level increased [Recovered/Resolved]
